FAERS Safety Report 10559657 (Version 1)
Quarter: 2014Q4

REPORT INFORMATION
  Report Type: Spontaneous
  Country: CA (occurrence: CA)
  Receive Date: 20141103
  Receipt Date: 20141103
  Transmission Date: 20150529
  Serious: Yes (Other)
  Sender: FDA-Public Use
  Company Number: CA-009507513-1410CAN014108

PATIENT
  Sex: Female

DRUGS (2)
  1. VICTRELIS [Suspect]
     Active Substance: BOCEPREVIR
     Dosage: UNK, TID
     Route: 048
     Dates: start: 20140227, end: 20140727
  2. PEGETRON [Suspect]
     Active Substance: PEGINTERFERON ALFA-2B\RIBAVIRIN
     Dosage: UNK, QW
     Route: 058
     Dates: start: 20140227, end: 20140727

REACTIONS (6)
  - Feeling abnormal [Unknown]
  - Immune system disorder [Unknown]
  - Feeding disorder [Unknown]
  - Haemoglobin abnormal [Unknown]
  - Adverse drug reaction [Unknown]
  - Cachexia [Unknown]

NARRATIVE: CASE EVENT DATE: 2014
